FAERS Safety Report 25383406 (Version 1)
Quarter: 2025Q2

REPORT INFORMATION
  Report Type: Spontaneous
  Country: GB (occurrence: GB)
  Receive Date: 20250602
  Receipt Date: 20250602
  Transmission Date: 20250716
  Serious: Yes (Disabling, Other)
  Sender: CIPLA
  Company Number: GB-MHRA-MED-202505180132417740-YZBFH

PATIENT

DRUGS (1)
  1. FINASTERIDE [Suspect]
     Active Substance: FINASTERIDE
     Indication: Alopecia
     Dosage: 1 MILLIGRAM, QD
     Route: 065

REACTIONS (2)
  - Loss of libido [Recovering/Resolving]
  - Erectile dysfunction [Not Recovered/Not Resolved]
